FAERS Safety Report 4883724-1 (Version None)
Quarter: 2006Q1

REPORT INFORMATION
  Report Type: 
  Country: None (occurrence: None)
  Receive Date: 20060113
  Receipt Date: 20051229
  Transmission Date: 20060701
  Serious: Yes (Hospitalization)
  Sender: FDA-Public Use
  Company Number: US_0511123621

PATIENT
  Sex: Female
  Weight: 66.4 kg

DRUGS (11)
  1. ZYPREXA [Suspect]
     Indication: ANXIETY
     Dosage: SEE IMAGE
     Dates: start: 19980323, end: 19980501
  2. ZYPREXA [Suspect]
     Indication: ANXIETY
     Dosage: SEE IMAGE
     Dates: start: 19990628, end: 20000303
  3. ZYPREXA [Suspect]
     Indication: ANXIETY
     Dosage: SEE IMAGE
     Dates: start: 19980323, end: 20030616
  4. ZYPREXA [Suspect]
     Indication: ANXIETY
     Dosage: SEE IMAGE
     Dates: start: 20000303, end: 20030616
  5. ZYPREXA ZYDIS [Suspect]
     Indication: ANXIETY
     Dosage: AS NEEDED, ORAL
     Route: 048
     Dates: end: 20040727
  6. LITHIUM CARBONATE [Concomitant]
  7. NEURONTIN [Concomitant]
  8. EFFEXOR [Concomitant]
  9. DEPAKOTE [Concomitant]
  10. BENADRYL ^PARKE DAVIS^ /ISR/ (DIPHENHYDRAMINE HYDROCHLORIDE) [Concomitant]
  11. TEGRETOL [Concomitant]

REACTIONS (19)
  - BLOOD PRESSURE FLUCTUATION [None]
  - DRUG EXPOSURE DURING PREGNANCY [None]
  - ENDOMETRIOSIS [None]
  - GASTRIC ULCER [None]
  - HAEMATOCHEZIA [None]
  - HEPATIC FUNCTION ABNORMAL [None]
  - HIATUS HERNIA [None]
  - HYPOACUSIS [None]
  - MENOMETRORRHAGIA [None]
  - NEPHROLITHIASIS [None]
  - OSTEOPOROSIS [None]
  - PREGNANCY [None]
  - RHEUMATOID ARTHRITIS [None]
  - STRESS ULCER [None]
  - SUICIDE ATTEMPT [None]
  - THERAPY NON-RESPONDER [None]
  - VISION BLURRED [None]
  - VOMITING [None]
  - WEIGHT DECREASED [None]
